FAERS Safety Report 13708533 (Version 1)
Quarter: 2017Q2

REPORT INFORMATION
  Report Type: Spontaneous
  Country: US (occurrence: US)
  Receive Date: 20170630
  Receipt Date: 20170630
  Transmission Date: 20170830
  Serious: Yes (Hospitalization)
  Sender: FDA-Public Use
  Company Number: US-SPECTRUM PHARMACEUTICALS, INC.-17-M-US-00200

PATIENT
  Age: 66 Year
  Sex: Female
  Weight: 51.7 kg

DRUGS (1)
  1. MARQIBO [Suspect]
     Active Substance: VINCRISTINE SULFATE
     Indication: ACUTE LYMPHOCYTIC LEUKAEMIA
     Dosage: 3.532 MG, EVERY 1 TO 3 WEEKS FOR 5 DOSES
     Route: 042
     Dates: start: 201610, end: 20161209

REACTIONS (7)
  - Asthenia [Unknown]
  - Acute lymphocytic leukaemia [None]
  - Malignant pleural effusion [Unknown]
  - Pancytopenia [Unknown]
  - Malnutrition [Unknown]
  - Disease progression [Unknown]
  - Mobility decreased [Unknown]

NARRATIVE: CASE EVENT DATE: 201612
